FAERS Safety Report 4967159-9 (Version None)
Quarter: 2006Q2

REPORT INFORMATION
  Report Type: 
  Country: None (occurrence: None)
  Receive Date: 20060404
  Receipt Date: 20060323
  Transmission Date: 20061013
  Serious: Yes (Death, Hospitalization)
  Sender: FDA-Public Use
  Company Number: 145058USA

PATIENT
  Age: 71 Year
  Sex: Female

DRUGS (2)
  1. MERCAPTOPURINE [Suspect]
     Indication: CROHN'S DISEASE
  2. REMICADE [Suspect]
     Indication: CROHN'S DISEASE

REACTIONS (21)
  - ABASIA [None]
  - ASTHENIA [None]
  - BODY TEMPERATURE DECREASED [None]
  - BRAIN MASS [None]
  - COORDINATION ABNORMAL [None]
  - DECREASED APPETITE [None]
  - DIFFUSE LARGE B-CELL LYMPHOMA [None]
  - EPSTEIN-BARR VIRUS TEST POSITIVE [None]
  - FACIAL PALSY [None]
  - FATIGUE [None]
  - GAIT DISTURBANCE [None]
  - GRAND MAL CONVULSION [None]
  - HEADACHE [None]
  - HYPOKINESIA [None]
  - IMMUNODEFICIENCY [None]
  - INGUINAL MASS [None]
  - LOSS OF CONSCIOUSNESS [None]
  - MYOCARDIAL INFARCTION [None]
  - NAUSEA [None]
  - PYREXIA [None]
  - VISION BLURRED [None]
